FAERS Safety Report 5981630-2 (Version None)
Quarter: 2008Q4

REPORT INFORMATION
  Report Type: 
  Country: None (occurrence: None)
  Receive Date: 20081205
  Receipt Date: 20081125
  Transmission Date: 20090506
  Serious: Yes (Hospitalization)
  Sender: FDA-Public Use
  Company Number: JP-JNJFOC-20081007471

PATIENT
  Sex: Female

DRUGS (9)
  1. TOPINA [Suspect]
     Route: 048
  2. TOPINA [Suspect]
     Route: 048
  3. TOPINA [Suspect]
     Route: 048
  4. TOPINA [Suspect]
     Route: 048
  5. TOPINA [Suspect]
     Indication: EPILEPSY
     Route: 048
  6. PHENYTOIN [Interacting]
     Route: 001
  7. PHENYTOIN [Interacting]
     Indication: EPILEPSY
     Route: 001
  8. PHENOBARBITAL TAB [Interacting]
  9. PHENOBARBITAL TAB [Interacting]
     Indication: EPILEPSY

REACTIONS (3)
  - CONVULSION [None]
  - DRUG INTERACTION [None]
  - DRUG TOXICITY [None]
